FAERS Safety Report 17445738 (Version 2)
Quarter: 2020Q1

REPORT INFORMATION
  Report Type: Spontaneous
  Country: HR (occurrence: HR)
  Receive Date: 20200221
  Receipt Date: 20200228
  Transmission Date: 20200409
  Serious: Yes (Other)
  Sender: FDA-Public Use
  Company Number: HR-US-PROVELL PHARMACEUTICALS LLC-E2B_90075117

PATIENT
  Age: 53 Year
  Sex: Female
  Weight: 52 kg

DRUGS (2)
  1. CONTROLOC [Concomitant]
     Active Substance: PANTOPRAZOLE SODIUM
     Indication: GASTRIC PH DECREASED
     Dosage: OTHER
     Route: 048
     Dates: start: 2019
  2. EUTHYROX NF [Suspect]
     Active Substance: LEVOTHYROXINE SODIUM
     Indication: PRODUCT USED FOR UNKNOWN INDICATION
     Route: 048

REACTIONS (19)
  - Nephrolithiasis [Recovering/Resolving]
  - Fatigue [Not Recovered/Not Resolved]
  - Muscular weakness [Unknown]
  - Chest discomfort [Unknown]
  - Memory impairment [Unknown]
  - Vertigo [Unknown]
  - Gastritis [Unknown]
  - Sensation of foreign body [Unknown]
  - Nausea [Unknown]
  - Flatulence [Unknown]
  - Somnolence [Not Recovered/Not Resolved]
  - Gait disturbance [Unknown]
  - Confusional state [Unknown]
  - Cough [Unknown]
  - Renal colic [Recovering/Resolving]
  - Tremor [Unknown]
  - Arrhythmia [Not Recovered/Not Resolved]
  - Constipation [Unknown]
  - Abdominal pain [Recovering/Resolving]

NARRATIVE: CASE EVENT DATE: 201911
